FAERS Safety Report 9913511 (Version 1)
Quarter: 2014Q1

REPORT INFORMATION
  Report Type: Spontaneous
  Country: US (occurrence: None)
  Receive Date: 20140218
  Receipt Date: 20140218
  Transmission Date: 20141002
  Serious: Yes (Life-Threatening, Hospitalization)
  Sender: FDA-Public Use
  Company Number: None

PATIENT
  Age: 51 Year
  Sex: Male
  Weight: 72.2 kg

DRUGS (1)
  1. ATENOLOL [Suspect]
     Route: 048
     Dates: start: 20130131, end: 20130307

REACTIONS (3)
  - Ventricular fibrillation [None]
  - Cardiac arrest [None]
  - Drug abuse [None]
